FAERS Safety Report 8233420 (Version 2)
Quarter: 2012Q4

REPORT INFORMATION
  Report Type: 
  Country: US (occurrence: US)
  Receive Date: 20111107
  Receipt Date: 20121107
  Transmission Date: 20130627
  Serious: Yes (Other)
  Sender: FDA-Public Use
  Company Number: US-ABBOTT-11P-163-0841550-00

PATIENT
  Age: 64 Year
  Sex: Female
  Weight: 93.98 kg

DRUGS (7)
  1. TRICOR [Suspect]
     Indication: PRODUCT USED FOR UNKNOWN INDICATION
     Route: 048
  2. LIPITOR [Suspect]
     Indication: BLOOD CHOLESTEROL INCREASED
     Dosage: Film-coated
     Route: 048
     Dates: start: 201103, end: 20110527
  3. METFORMIN HCL [Suspect]
     Indication: DIABETES MELLITUS
     Route: 048
  4. NORVASC [Suspect]
     Indication: BLOOD PRESSURE
     Dosage: Film-coated
  5. BENICAR [Suspect]
     Indication: PRODUCT USED FOR UNKNOWN INDICATION
     Dosage: Film-Coated
     Route: 048
  6. KLOR-CON [Suspect]
     Indication: MINERAL SUPPLEMENTATION
     Route: 048
  7. ATENOLOL [Suspect]
     Indication: BLOOD PRESSURE
     Route: 048

REACTIONS (3)
  - Myalgia [Recovered/Resolved]
  - Drug interaction [Unknown]
  - Oedema peripheral [Recovered/Resolved]
